FAERS Safety Report 6683003-6 (Version None)
Quarter: 2010Q2

REPORT INFORMATION
  Report Type: 
  Country: None (occurrence: None)
  Receive Date: 20100415
  Receipt Date: 20100407
  Transmission Date: 20101027
  Serious: Yes (Hospitalization)
  Sender: FDA-Public Use
  Company Number: FR-SANOFI-AVENTIS-2010SA004224

PATIENT
  Age: 33 Year
  Sex: Female

DRUGS (3)
  1. PLAQUENIL [Suspect]
     Route: 048
     Dates: start: 20060901
  2. PLAQUENIL [Suspect]
     Route: 048
     Dates: end: 20070501
  3. KARDEGIC [Concomitant]
     Route: 048
     Dates: start: 20060901, end: 20070501

REACTIONS (1)
  - VULVOVAGINAL PRURITUS [None]
